FAERS Safety Report 7946309-6 (Version None)
Quarter: 2011Q4

REPORT INFORMATION
  Report Type: 
  Country: None (occurrence: None)
  Receive Date: 20111129
  Receipt Date: 20110609
  Transmission Date: 20120403
  Serious: Yes (Hospitalization)
  Sender: FDA-Public Use
  Company Number: DE-ROCHE-1016721

PATIENT
  Sex: Female

DRUGS (3)
  1. AVASTIN [Suspect]
     Indication: COLON CANCER METASTATIC
     Route: 042
     Dates: start: 20110608
  2. IRINOTECAN HCL [Concomitant]
     Indication: COLON CANCER METASTATIC
     Route: 042
     Dates: start: 20110608
  3. CAPECITABINE [Concomitant]
     Indication: COLON CANCER METASTATIC
     Route: 048
     Dates: start: 20110606

REACTIONS (2)
  - CEREBROVASCULAR ACCIDENT [None]
  - HEMIPARESIS [None]
